FAERS Safety Report 11684069 (Version 2)
Quarter: 2015Q4

REPORT INFORMATION
  Report Type: Spontaneous
  Country: BR (occurrence: BR)
  Receive Date: 20151029
  Receipt Date: 20151117
  Transmission Date: 20160304
  Serious: Yes (Other)
  Sender: FDA-Public Use
  Company Number: CHPA2015BR012592

PATIENT
  Sex: Male
  Weight: 94 kg

DRUGS (3)
  1. NARIDRIN [Concomitant]
     Indication: NASAL CONGESTION
     Dosage: 3 DF, EACH NOSTRIL PER DAY
     Route: 065
     Dates: start: 201510
  2. OTRIVINA [Suspect]
     Active Substance: XYLOMETAZOLINE
     Indication: NASAL CONGESTION
     Dosage: 3 DRP, QID, IN EACH NOSTRIL
     Route: 065
     Dates: start: 1964, end: 201510
  3. OTRIVINA [Suspect]
     Active Substance: XYLOMETAZOLINE
     Dosage: 3 DRP, QID, EACH NOSTRIL
     Route: 065
     Dates: start: 201510

REACTIONS (6)
  - Neoplasm malignant [Unknown]
  - Hypertriglyceridaemia [Recovering/Resolving]
  - Diabetes mellitus [Recovering/Resolving]
  - Prostate cancer [Recovered/Resolved]
  - Blood pressure decreased [Recovered/Resolved]
  - Hypoglycaemia [Recovered/Resolved]

NARRATIVE: CASE EVENT DATE: 2009
